FAERS Safety Report 10142016 (Version 2)
Quarter: 2014Q4

REPORT INFORMATION
  Report Type: Spontaneous
  Country: FR (occurrence: FR)
  Receive Date: 20140429
  Receipt Date: 20141120
  Transmission Date: 20150528
  Serious: Yes (Other)
  Sender: FDA-Public Use
  Company Number: FR-BAXTER-2014BAX019873

PATIENT
  Age: 47 Year
  Sex: Female

DRUGS (8)
  1. ETOPOSIDE TEVA [Suspect]
     Active Substance: ETOPOSIDE
     Indication: DIFFUSE LARGE B-CELL LYMPHOMA STAGE IV
     Dosage: FIRST COURSE OF R-ICE
     Route: 042
     Dates: start: 20131211, end: 20131213
  2. CARBOPLATIN HOSPIRA [Suspect]
     Active Substance: CARBOPLATIN
     Indication: DIFFUSE LARGE B-CELL LYMPHOMA STAGE IV
     Dosage: FIRST COURSE OF R-ICE
     Route: 042
     Dates: start: 20131212, end: 20131212
  3. CLONAZEPAM. [Concomitant]
     Active Substance: CLONAZEPAM
     Indication: CHEMOTHERAPY
  4. UROMITEXAN 5 G/50 ML, SOLUTION INJECTABLE POUR PERFUSION EN FLACON [Suspect]
     Active Substance: MESNA
     Indication: DIFFUSE LARGE B-CELL LYMPHOMA STAGE IV
     Route: 042
     Dates: start: 20131212, end: 20131213
  5. IFOSFAMIDE EG [Suspect]
     Active Substance: IFOSFAMIDE
     Indication: DIFFUSE LARGE B-CELL LYMPHOMA STAGE IV
     Dosage: FIRST COURSE OF R-ICE
     Route: 042
     Dates: start: 20131212, end: 20131213
  6. MABTHERA [Suspect]
     Active Substance: RITUXIMAB
     Indication: DIFFUSE LARGE B-CELL LYMPHOMA STAGE IV
     Dosage: FIRST COURSE OF R-ICE
     Route: 042
     Dates: start: 20131211, end: 20131211
  7. CLONAZEPAM. [Concomitant]
     Active Substance: CLONAZEPAM
     Indication: PROPHYLAXIS
     Route: 065
  8. ZOPHREN 8MG/4 ML [Concomitant]
     Indication: PRODUCT USED FOR UNKNOWN INDICATION
     Route: 042
     Dates: start: 20131211, end: 20131216

REACTIONS (2)
  - Encephalopathy [Recovered/Resolved]
  - Clonic convulsion [Recovered/Resolved]

NARRATIVE: CASE EVENT DATE: 20131213
